FAERS Safety Report 8086614-9 (Version None)
Quarter: 2012Q1

REPORT INFORMATION
  Report Type: 
  Country: None (occurrence: None)
  Receive Date: 20120128
  Receipt Date: 20110516
  Transmission Date: 20120608
  Serious: No
  Sender: FDA-Public Use
  Company Number: US-ABBOTT-11P-163-0726330-00

PATIENT
  Sex: Female

DRUGS (7)
  1. FERROUS SULFATE TAB [Concomitant]
     Indication: MINERAL SUPPLEMENTATION
     Route: 048
  2. AMBIEN [Concomitant]
     Indication: INSOMNIA
     Dosage: AT NIGHT
     Route: 048
  3. CLONIDINE [Concomitant]
     Indication: HYPERTENSION
     Route: 048
  4. ASCORBIC ACID [Concomitant]
     Indication: VITAMIN SUPPLEMENTATION
     Route: 048
  5. HUMIRA [Suspect]
     Indication: RHEUMATOID ARTHRITIS
     Dates: start: 20100101
  6. LEVOXYL [Concomitant]
     Indication: HYPOTHYROIDISM
     Route: 048
  7. PRISTIQ [Concomitant]
     Indication: DEPRESSION
     Route: 048

REACTIONS (3)
  - COUGH [None]
  - RESPIRATORY TRACT CONGESTION [None]
  - INCORRECT DOSE ADMINISTERED [None]
